FAERS Safety Report 7009507-4 (Version None)
Quarter: 2010Q3

REPORT INFORMATION
  Report Type: 
  Country: None (occurrence: None)
  Receive Date: 20100923
  Receipt Date: 20100913
  Transmission Date: 20110219
  Serious: Yes (Hospitalization)
  Sender: FDA-Public Use
  Company Number: PHHY2010US61347

PATIENT
  Sex: Male
  Weight: 88.5 kg

DRUGS (2)
  1. ERL 080A ERL+TAB [Suspect]
     Indication: RENAL TRANSPLANT
     Dosage: 1080 MG/DAY
     Route: 048
     Dates: start: 20090822
  2. NEUTRA-PHOS [Concomitant]
     Indication: HYPERCALCAEMIA
     Dosage: 1.25 G, QD
     Route: 048
     Dates: start: 20091108, end: 20091116

REACTIONS (6)
  - ASTHENIA [None]
  - DIARRHOEA [None]
  - ELECTROLYTE IMBALANCE [None]
  - FATIGUE [None]
  - HIP FRACTURE [None]
  - INTERNAL FIXATION OF FRACTURE [None]
